FAERS Safety Report 13266459 (Version 5)
Quarter: 2018Q4

REPORT INFORMATION
  Report Type: Spontaneous
  Country: IT (occurrence: IT)
  Receive Date: 20170223
  Receipt Date: 20181109
  Transmission Date: 20190204
  Serious: Yes (Hospitalization, Other)
  Sender: FDA-Public Use
  Company Number: IT-MYLANLABS-2017M1012156

PATIENT
  Age: 41 Year
  Sex: Male

DRUGS (6)
  1. VALSARTAN. [Concomitant]
     Active Substance: VALSARTAN
     Indication: PRODUCT USED FOR UNKNOWN INDICATION
     Dosage: 80 MG, QD
  2. METFORMIN [Suspect]
     Active Substance: METFORMIN HYDROCHLORIDE
     Indication: TYPE 2 DIABETES MELLITUS
     Dosage: 1700 MG, QD
  3. OMEPRAZOLE. [Interacting]
     Active Substance: OMEPRAZOLE
     Indication: PRODUCT USED FOR UNKNOWN INDICATION
     Dosage: 20 MG, QD
  4. METFORMIN [Interacting]
     Active Substance: METFORMIN HYDROCHLORIDE
     Dosage: 2425 UNK, UNK
  5. BISOPROLOL [Concomitant]
     Active Substance: BISOPROLOL
     Indication: PRODUCT USED FOR UNKNOWN INDICATION
     Dosage: 5 MG, QD
  6. SITAGLIPTIN [Concomitant]
     Active Substance: SITAGLIPTIN
     Indication: PRODUCT USED FOR UNKNOWN INDICATION
     Dosage: 50 MG, BID

REACTIONS (12)
  - Hypocalcaemia [Recovering/Resolving]
  - Coordination abnormal [Recovering/Resolving]
  - Wernicke^s encephalopathy [Recovering/Resolving]
  - Primary familial hypomagnesaemia [Recovering/Resolving]
  - Vitamin B1 decreased [Recovered/Resolved]
  - Dysarthria [Recovering/Resolving]
  - Tremor [Recovering/Resolving]
  - Oscillopsia [Recovering/Resolving]
  - Confusional state [Recovering/Resolving]
  - Hypomagnesaemia [Recovered/Resolved]
  - Hypokalaemia [Recovering/Resolving]
  - Drug interaction [Recovering/Resolving]
